FAERS Safety Report 8550145-X (Version None)
Quarter: 2012Q3

REPORT INFORMATION
  Report Type: 
  Country: None (occurrence: None)
  Receive Date: 20120730
  Receipt Date: 20110301
  Transmission Date: 20120928
  Serious: No
  Sender: FDA-Public Use
  Company Number: US-ALLERGAN-1102916US

PATIENT
  Age: 62 Year
  Sex: Female

DRUGS (2)
  1. COSOPT [Concomitant]
     Indication: INTRAOCULAR PRESSURE INCREASED
     Dosage: 1 GTT, BID
     Route: 047
     Dates: start: 20110101
  2. LUMIGAN [Suspect]
     Indication: INTRAOCULAR PRESSURE INCREASED
     Dosage: 1 GTT, QD
     Route: 047
     Dates: start: 20090101

REACTIONS (1)
  - INTRAOCULAR PRESSURE INCREASED [None]
